FAERS Safety Report 20187223 (Version 1)
Quarter: 2021Q4

REPORT INFORMATION
  Report Type: Spontaneous
  Country: US (occurrence: None)
  Receive Date: 20211214
  Receipt Date: 20211214
  Transmission Date: 20220303
  Serious: No
  Sender: FDA-Public Use
  Company Number: None

PATIENT
  Sex: Female
  Weight: 67.49 kg

DRUGS (20)
  1. TEMOZOLOMIDE [Suspect]
     Active Substance: TEMOZOLOMIDE
     Dosage: OTHER FREQUENCY : DAYS 1-5 (28 DAY);?
     Route: 048
  2. FLUTICASONE [Concomitant]
     Active Substance: FLUTICASONE
  3. ACETAMINOPHEN [Concomitant]
     Active Substance: ACETAMINOPHEN
  4. ALLOPURINOL [Concomitant]
     Active Substance: ALLOPURINOL
  5. BETAMETHASONE [Concomitant]
     Active Substance: BETAMETHASONE
  6. CALCIUM [Concomitant]
     Active Substance: CALCIUM
  7. DESOXIMETASONE [Concomitant]
     Active Substance: DESOXIMETASONE
  8. EPIPEN [Suspect]
     Active Substance: EPINEPHRINE
  9. HYDROCORTISONE [Concomitant]
     Active Substance: HYDROCORTISONE
  10. KEPPRA [Concomitant]
     Active Substance: LEVETIRACETAM
  11. LEVOTHYROXINE [Concomitant]
     Active Substance: LEVOTHYROXINE
  12. LORATADINE [Concomitant]
     Active Substance: LORATADINE
  13. MELATONIN [Concomitant]
     Active Substance: MELATONIN
  14. METRONIDAZOLE [Concomitant]
     Active Substance: METRONIDAZOLE
  15. VITAMINS [Concomitant]
     Active Substance: VITAMINS
  16. SENOKOT [Concomitant]
     Active Substance: SENNOSIDES
  17. SYNALAR [Concomitant]
     Active Substance: FLUOCINOLONE ACETONIDE
  18. TRIAMCINOLONE [Concomitant]
     Active Substance: TRIAMCINOLONE
  19. VITAMIN D3 [Concomitant]
     Active Substance: CHOLECALCIFEROL
  20. DEXAMETHASONE [Concomitant]
     Active Substance: DEXAMETHASONE

REACTIONS (1)
  - Anaemia [None]
